FAERS Safety Report 24025923 (Version 1)
Quarter: 2024Q2

REPORT INFORMATION
  Report Type: Report from Study
  Country: IN (occurrence: IN)
  Receive Date: 20240628
  Receipt Date: 20240628
  Transmission Date: 20240716
  Serious: No
  Sender: FDA-Public Use
  Company Number: IN-ROCHE-3205780

PATIENT
  Age: 63 Year
  Sex: Female

DRUGS (2)
  1. PHESGO [Suspect]
     Active Substance: HYALURONIDASE-ZZXF\PERTUZUMAB\TRASTUZUMAB
     Indication: Breast cancer metastatic
     Route: 058
     Dates: start: 20221008
  2. PHESGO [Suspect]
     Active Substance: HYALURONIDASE-ZZXF\PERTUZUMAB\TRASTUZUMAB
     Route: 058

REACTIONS (13)
  - Off label use [Unknown]
  - Dizziness [Unknown]
  - Dysstasia [Unknown]
  - Feeling abnormal [Unknown]
  - Asthenia [Unknown]
  - Weight decreased [Unknown]
  - Tremor [Unknown]
  - Diarrhoea [Unknown]
  - Ageusia [Unknown]
  - Tongue discolouration [Unknown]
  - Pruritus [Unknown]
  - Dyspnoea [Unknown]
  - Off label use [Unknown]
